FAERS Safety Report 21391518 (Version 9)
Quarter: 2024Q1

REPORT INFORMATION
  Report Type: Spontaneous
  Country: US (occurrence: US)
  Receive Date: 20220929
  Receipt Date: 20240105
  Transmission Date: 20240410
  Serious: No
  Sender: FDA-Public Use
  Company Number: US-PFIZER INC-PV202200058477

PATIENT
  Age: 65 Year
  Sex: Female
  Weight: 90.703 kg

DRUGS (2)
  1. PREMARIN [Suspect]
     Active Substance: ESTROGENS, CONJUGATED
     Indication: Cervix carcinoma
     Dosage: 1.25 MG, 1X/DAY
     Dates: start: 19980610
  2. PREMARIN [Suspect]
     Active Substance: ESTROGENS, CONJUGATED
     Indication: Cancer surgery

REACTIONS (2)
  - Malaise [Unknown]
  - Illness [Unknown]
